FAERS Safety Report 8748234 (Version 2)
Quarter: 2015Q2

REPORT INFORMATION
  Report Type: Report from Study
  Country: US (occurrence: US)
  Receive Date: 20120827
  Receipt Date: 20150625
  Transmission Date: 20150821
  Serious: Yes (Death)
  Sender: FDA-Public Use
  Company Number: US-ROCHE-1094237

PATIENT
  Sex: Male

DRUGS (2)
  1. TARCEVA [Suspect]
     Active Substance: ERLOTINIB HYDROCHLORIDE
     Indication: MALIGNANT MELANOMA
     Route: 065
  2. XELODA [Suspect]
     Active Substance: CAPECITABINE
     Indication: MALIGNANT MELANOMA
     Dosage: 2 TIMES PER DAY THEN OFF FOR 7 DAYS
     Route: 048

REACTIONS (2)
  - Death [Fatal]
  - Off label use [Unknown]
